FAERS Safety Report 6757071-7 (Version None)
Quarter: 2010Q2

REPORT INFORMATION
  Report Type: 
  Country: None (occurrence: None)
  Receive Date: 20100604
  Receipt Date: 20100524
  Transmission Date: 20101027
  Serious: Yes (Death, Hospitalization)
  Sender: FDA-Public Use
  Company Number: US-ELI_LILLY_AND_COMPANY-US201003005469

PATIENT
  Sex: Female
  Weight: 42.63 kg

DRUGS (1)
  1. FORTEO [Suspect]
     Indication: OSTEOPOROSIS
     Dates: start: 20100122, end: 20100216

REACTIONS (4)
  - BILIARY DILATATION [None]
  - CHOLANGITIS [None]
  - CHOLELITHIASIS [None]
  - PERFORATED ULCER [None]
